FAERS Safety Report 4842268-3 (Version None)
Quarter: 2005Q4

REPORT INFORMATION
  Report Type: 
  Country: None (occurrence: None)
  Receive Date: 20051125
  Receipt Date: 20051115
  Transmission Date: 20060501
  Serious: Yes (Death)
  Sender: FDA-Public Use
  Company Number: 2005156878

PATIENT
  Sex: Female

DRUGS (3)
  1. NEURONTIN [Suspect]
     Indication: ATTENTION DEFICIT/HYPERACTIVITY DISORDER
  2. NEURONTIN [Suspect]
     Indication: BIPOLAR DISORDER
  3. NEURONTIN [Suspect]
     Indication: PAIN

REACTIONS (2)
  - COMPLETED SUICIDE [None]
  - DRUG INEFFECTIVE [None]
